FAERS Safety Report 10094353 (Version 1)
Quarter: 2014Q2

REPORT INFORMATION
  Report Type: Spontaneous
  Country: US (occurrence: US)
  Receive Date: 20140422
  Receipt Date: 20140422
  Transmission Date: 20141212
  Serious: Yes (Death)
  Sender: FDA-Public Use
  Company Number: US-SA-2014SA044956

PATIENT
  Age: 63 Year
  Sex: Male
  Weight: 149.68 kg

DRUGS (15)
  1. LANTUS [Suspect]
     Indication: PRODUCT USED FOR UNKNOWN INDICATION
     Dosage: DOSE:45 UNIT(S)
     Route: 058
     Dates: start: 20140115
  2. ASPIRIN [Concomitant]
     Route: 048
  3. FENOFIBRATE [Concomitant]
     Route: 048
  4. METFORMIN HYDROCHLORIDE [Concomitant]
     Dosage: STRENGTH: 850 MG
     Route: 048
  5. FUROSEMIDE [Concomitant]
     Route: 048
  6. LISINOPRIL [Concomitant]
     Route: 048
  7. ISOSORBIDE MONONITRATE [Concomitant]
     Route: 048
  8. METOPROLOL TARTRATE [Concomitant]
     Route: 048
  9. GLYBURIDE [Concomitant]
     Route: 048
  10. FLUTICASONE PROPIONATE [Concomitant]
     Route: 045
  11. GABAPENTIN [Concomitant]
     Route: 048
  12. CLOPIDOGREL BISULFATE [Concomitant]
     Route: 048
  13. ALBUTEROL SULFATE [Concomitant]
     Dosage: INHALE 2 PUFF EVERY 4-6 HOURS AS NEEDED
     Route: 055
  14. AZITHROMYCIN [Concomitant]
     Route: 048
  15. AZITHROMYCIN [Concomitant]
     Route: 048

REACTIONS (16)
  - Death [Fatal]
  - Insomnia [Unknown]
  - Nasopharyngitis [Unknown]
  - Productive cough [Unknown]
  - Chills [Unknown]
  - Fatigue [Unknown]
  - Pyrexia [Unknown]
  - Nasal congestion [Unknown]
  - Upper-airway cough syndrome [Unknown]
  - Oropharyngeal pain [Unknown]
  - Dyspnoea [Unknown]
  - Paranasal sinus discomfort [Unknown]
  - Wheezing [Unknown]
  - Rhinitis [Unknown]
  - Ear pain [Recovering/Resolving]
  - Dizziness [Unknown]
